FAERS Safety Report 12203478 (Version 8)
Quarter: 2023Q2

REPORT INFORMATION
  Report Type: Spontaneous
  Country: FR (occurrence: FR)
  Receive Date: 20160323
  Receipt Date: 20230406
  Transmission Date: 20230721
  Serious: Yes (Death, Hospitalization, Other)
  Sender: FDA-Public Use
  Company Number: PHHY2016FR022759

PATIENT
  Age: 39 Year
  Sex: Female
  Weight: 70 kg

DRUGS (14)
  1. TRILEPTAL [Suspect]
     Active Substance: OXCARBAZEPINE
     Indication: Status epilepticus
     Dosage: UNK
     Route: 048
     Dates: start: 20160118, end: 20160204
  2. RIVOTRIL [Suspect]
     Active Substance: CLONAZEPAM
     Indication: Status epilepticus
     Dosage: 2 MG, QD
     Route: 048
     Dates: start: 20160118, end: 20160118
  3. RIVOTRIL [Suspect]
     Active Substance: CLONAZEPAM
     Dosage: 4 MG/DAY
     Route: 048
     Dates: start: 20160119
  4. KEPPRA [Suspect]
     Active Substance: LEVETIRACETAM
     Indication: Status epilepticus
     Dosage: 1 G, TID
     Route: 042
     Dates: start: 20160117, end: 20160119
  5. KEPPRA [Suspect]
     Active Substance: LEVETIRACETAM
     Dosage: UNK
     Route: 042
     Dates: start: 20160125
  6. DILANTIN (PHENYTOIN SODIUM) [Suspect]
     Active Substance: PHENYTOIN SODIUM
     Indication: Status epilepticus
     Dosage: 700 MG, UNK
     Route: 042
     Dates: start: 20160117, end: 20160207
  7. PHENOBARBITAL [Suspect]
     Active Substance: PHENOBARBITAL
     Indication: Status epilepticus
     Dosage: UNK
     Route: 048
     Dates: start: 20160117, end: 20160119
  8. PHENOBARBITAL [Suspect]
     Active Substance: PHENOBARBITAL
     Dosage: FOR 24 HOURS
     Route: 048
     Dates: start: 20160130
  9. PHENOBARBITAL [Suspect]
     Active Substance: PHENOBARBITAL
     Dosage: THERE WAS LOAD CHARGE OF PHENOBARBITAL THEN THE DOSE WAS MAINTAINED.
     Route: 048
     Dates: start: 20160205
  10. VIMPAT [Suspect]
     Active Substance: LACOSAMIDE
     Indication: Status epilepticus
     Dosage: UNK
     Route: 048
     Dates: start: 20160118, end: 20160130
  11. VIMPAT [Suspect]
     Active Substance: LACOSAMIDE
     Dosage: UNK
     Route: 065
  12. PROPOFOL [Suspect]
     Active Substance: PROPOFOL
     Indication: Status epilepticus
     Dosage: UNK
     Route: 042
     Dates: start: 20160117
  13. MAGNESIUM SULFATE [Concomitant]
     Active Substance: MAGNESIUM SULFATE
     Indication: Product used for unknown indication
     Dosage: UNK
     Route: 065
  14. NICARDIPINE HYDROCHLORIDE [Concomitant]
     Active Substance: NICARDIPINE HYDROCHLORIDE
     Indication: Blood pressure abnormal
     Dosage: UNK
     Route: 065
     Dates: start: 20160117

REACTIONS (12)
  - Agranulocytosis [Fatal]
  - Septic shock [Fatal]
  - Transaminases increased [Fatal]
  - Gamma-glutamyltransferase increased [Fatal]
  - Multiple organ dysfunction syndrome [Fatal]
  - Pyrexia [Fatal]
  - Blood alkaline phosphatase increased [Fatal]
  - Lung disorder [Fatal]
  - Pre-eclampsia [Fatal]
  - Liver injury [Fatal]
  - Premature delivery [Unknown]
  - Maternal exposure during pregnancy [Unknown]

NARRATIVE: CASE EVENT DATE: 20160117
